FAERS Safety Report 4903611-X (Version None)
Quarter: 2006Q1

REPORT INFORMATION
  Report Type: 
  Country: None (occurrence: None)
  Receive Date: 20060203
  Receipt Date: 20060123
  Transmission Date: 20060701
  Serious: Yes (Life-Threatening, Hospitalization)
  Sender: FDA-Public Use
  Company Number: CERZ-11117

PATIENT
  Age: 51 Year
  Sex: Female
  Weight: 66 kg

DRUGS (6)
  1. CEREZYME [Suspect]
     Indication: GAUCHER'S DISEASE
     Dosage: 1600 UNITS Q2WKS IV
     Route: 042
     Dates: start: 19990202
  2. DICLOFENAC [Suspect]
  3. PREDNISOLONE [Concomitant]
  4. ALENDRONATE SODIUM [Concomitant]
  5. CLARITHROMYCIN [Concomitant]
  6. LANSOPRAZOLE [Concomitant]

REACTIONS (7)
  - ANAEMIA [None]
  - ARTHROPATHY [None]
  - FLUID INTAKE REDUCED [None]
  - GASTROINTESTINAL ULCER HAEMORRHAGE [None]
  - HAEMODIALYSIS [None]
  - POST PROCEDURAL COMPLICATION [None]
  - RENAL FAILURE [None]
